FAERS Safety Report 11074387 (Version 1)
Quarter: 2015Q2

REPORT INFORMATION
  Report Type: Spontaneous
  Country: US (occurrence: None)
  Receive Date: 20150428
  Receipt Date: 20150428
  Transmission Date: 20150821
  Serious: Yes (Disabling)
  Sender: FDA-Public Use
  Company Number: None

PATIENT
  Age: 54 Year
  Sex: Male
  Weight: 68.04 kg

DRUGS (1)
  1. LIBRIUM [Suspect]
     Active Substance: CHLORDIAZEPOXIDE HYDROCHLORIDE
     Indication: ANXIETY
     Dosage: ZANAZ

REACTIONS (29)
  - Confusional state [None]
  - Drug withdrawal syndrome [None]
  - Tongue biting [None]
  - Hearing impaired [None]
  - Obsessive-compulsive disorder [None]
  - Mood swings [None]
  - Psychotic disorder [None]
  - Anxiety [None]
  - Muscle spasms [None]
  - Chest pain [None]
  - Hyperaesthesia [None]
  - Feeling abnormal [None]
  - Blood pressure increased [None]
  - Nervous system disorder [None]
  - Mydriasis [None]
  - Illusion [None]
  - Dysgeusia [None]
  - Cognitive disorder [None]
  - Insomnia [None]
  - Memory impairment [None]
  - Hyperacusis [None]
  - Tremor [None]
  - Paraesthesia [None]
  - Disturbance in attention [None]
  - Depression [None]
  - Hyperhidrosis [None]
  - Abulia [None]
  - Hyperthermia [None]
  - Delusion [None]
